FAERS Safety Report 10866195 (Version 1)
Quarter: 2015Q1

REPORT INFORMATION
  Report Type: Spontaneous
  Country: US (occurrence: None)
  Receive Date: 20150219
  Receipt Date: 20150219
  Transmission Date: 20150721
  Serious: Yes (Disabling)
  Sender: FDA-Public Use
  Company Number: None

PATIENT
  Age: 44 Year
  Sex: Male
  Weight: 79.38 kg

DRUGS (1)
  1. OXYCODONE [Suspect]
     Active Substance: OXYCODONE

REACTIONS (5)
  - Therapy cessation [None]
  - Job dissatisfaction [None]
  - Hypertension [None]
  - Marital problem [None]
  - Pain [None]

NARRATIVE: CASE EVENT DATE: 20150218
